FAERS Safety Report 7919781-5 (Version None)
Quarter: 2011Q4

REPORT INFORMATION
  Report Type: 
  Country: None (occurrence: None)
  Receive Date: 20111117
  Receipt Date: 20111117
  Transmission Date: 20120403
  Serious: Yes (Life-Threatening, Other)
  Sender: FDA-Public Use
  Company Number: None

PATIENT
  Age: 49 Year
  Sex: Male
  Weight: 81.646 kg

DRUGS (1)
  1. LAMICTAL [Suspect]
     Indication: BIPOLAR DISORDER
     Dosage: 200MG
     Dates: start: 20110815, end: 20111108

REACTIONS (6)
  - SUICIDAL IDEATION [None]
  - PRODUCT QUALITY ISSUE [None]
  - MANIA [None]
  - PRODUCT SUBSTITUTION ISSUE [None]
  - ANXIETY [None]
  - PRODUCT COUNTERFEIT [None]
